FAERS Safety Report 9684685 (Version 1)
Quarter: 2013Q4

REPORT INFORMATION
  Report Type: Spontaneous
  Country: FR (occurrence: FR)
  Receive Date: 20131112
  Receipt Date: 20131112
  Transmission Date: 20140711
  Serious: Yes (Life-Threatening, Hospitalization)
  Sender: FDA-Public Use
  Company Number: FR-PFIZER INC-2013320506

PATIENT
  Age: 84 Year
  Sex: Male

DRUGS (8)
  1. BILASKA [Suspect]
     Dosage: 20 MG, 1X/DAY
     Route: 048
     Dates: end: 20130823
  2. GABAPENTIN [Suspect]
     Dosage: 100 MG, 1X/DAY
     Route: 048
     Dates: end: 20130823
  3. GLIVEC [Suspect]
     Indication: CHRONIC MYELOID LEUKAEMIA
     Dosage: 400 MG, 1X/DAY
     Route: 048
     Dates: start: 20110216, end: 20130823
  4. CYMBALTA [Suspect]
     Dosage: UNK
     Route: 048
     Dates: end: 20130823
  5. CELIPROLOL [Suspect]
     Indication: SUPRAVENTRICULAR TACHYCARDIA
     Dosage: 200 MG, 1X/DAY
     Route: 048
     Dates: end: 20130823
  6. FENOFIBRATE [Suspect]
     Dosage: 300 MG, 1X/DAY
     Route: 048
     Dates: end: 20130823
  7. ZOPICLONE [Suspect]
     Dosage: 7.5 MG, 1X/DAY
     Route: 048
     Dates: end: 20130823
  8. MACROGOL [Concomitant]
     Dosage: UNK

REACTIONS (2)
  - Embolism [Unknown]
  - Atrial fibrillation [Not Recovered/Not Resolved]
